FAERS Safety Report 6760381-0 (Version None)
Quarter: 2010Q2

REPORT INFORMATION
  Report Type: 
  Country: None (occurrence: None)
  Receive Date: 20100608
  Receipt Date: 20100526
  Transmission Date: 20101027
  Serious: No
  Sender: FDA-Public Use
  Company Number: US-ROXANE LABORATORIES, INC.-2010-RO-00693RO

PATIENT
  Sex: Female

DRUGS (1)
  1. CALCIUM CARBONATE [Suspect]
     Indication: MINERAL SUPPLEMENTATION
     Route: 048
     Dates: start: 20100501, end: 20100501

REACTIONS (2)
  - DIARRHOEA [None]
  - FLATULENCE [None]
